FAERS Safety Report 21691144 (Version 2)
Quarter: 2022Q4

REPORT INFORMATION
  Report Type: Spontaneous
  Country: TR (occurrence: TR)
  Receive Date: 20221207
  Receipt Date: 20221228
  Transmission Date: 20230112
  Serious: Yes (Disabling, Other)
  Sender: FDA-Public Use
  Company Number: TR-ABBOTT-2022A-1356699

PATIENT
  Age: 56 Year
  Sex: Female

DRUGS (1)
  1. FENOFIBRATE [Suspect]
     Active Substance: FENOFIBRATE
     Indication: Blood cholesterol increased
     Route: 048
     Dates: end: 20221122

REACTIONS (12)
  - Back pain [Recovering/Resolving]
  - Weight decreased [Unknown]
  - Myalgia [Unknown]
  - Red blood cell sedimentation rate increased [Not Recovered/Not Resolved]
  - Arthralgia [Unknown]
  - Myalgia [Not Recovered/Not Resolved]
  - Inflammation [Not Recovered/Not Resolved]
  - Peripheral swelling [Unknown]
  - Hyperhidrosis [Unknown]
  - Decreased appetite [Unknown]
  - Pain [Not Recovered/Not Resolved]
  - Muscle disorder [Unknown]

NARRATIVE: CASE EVENT DATE: 20220101
